FAERS Safety Report 7375914-3 (Version None)
Quarter: 2011Q1

REPORT INFORMATION
  Report Type: 
  Country: None (occurrence: None)
  Receive Date: 20110325
  Receipt Date: 20110317
  Transmission Date: 20110831
  Serious: Yes (Death, Life-Threatening, Hospitalization)
  Sender: FDA-Public Use
  Company Number: B0708112A

PATIENT
  Age: 72 Year
  Sex: Male

DRUGS (3)
  1. VENTOLIN [Concomitant]
     Indication: ASTHMA
     Route: 065
     Dates: start: 20000101, end: 20060101
  2. SERETIDE ACCUHALER [Suspect]
     Indication: ASTHMA
     Dosage: 1PUFF TWICE PER DAY
     Route: 065
     Dates: start: 20060101, end: 20100101
  3. CLENIL [Concomitant]
     Indication: ASTHMA
     Dosage: 2PUFF PER DAY
     Route: 065
     Dates: start: 20000101, end: 20060101

REACTIONS (2)
  - NEPHROTIC SYNDROME [None]
  - HAEMATURIA [None]
